FAERS Safety Report 9513432 (Version 1)
Quarter: 2013Q3

REPORT INFORMATION
  Report Type: Spontaneous
  Country: US (occurrence: US)
  Receive Date: 20130910
  Receipt Date: 20130910
  Transmission Date: 20140515
  Serious: No
  Sender: FDA-Public Use
  Company Number: US-TARO-2012P1061186

PATIENT
  Age: 47 Year
  Sex: Female
  Weight: 75.75 kg

DRUGS (5)
  1. WARFARIN SODIUM TABLETS USP 5MG [Suspect]
     Route: 048
     Dates: start: 20120416, end: 20121017
  2. WARFARIN SODIUM TABLETS USP 5MG [Suspect]
     Route: 048
     Dates: start: 20121018
  3. AMLODIPINE [Concomitant]
     Dates: start: 201204
  4. HYDROCHLOROTHIAZIDE [Concomitant]
     Dates: start: 201204
  5. FLUOXETINE [Concomitant]

REACTIONS (1)
  - Drug ineffective [Not Recovered/Not Resolved]
